FAERS Safety Report 4304754-4 (Version None)
Quarter: 2004Q1

REPORT INFORMATION
  Report Type: 
  Country: None (occurrence: None)
  Receive Date: 20040226
  Receipt Date: 20031202
  Transmission Date: 20041129
  Serious: No
  Sender: FDA-Public Use
  Company Number: US-GLAXOSMITHKLINE-A0441635A

PATIENT
  Age: 29 Year
  Sex: Female

DRUGS (1)
  1. WELLBUTRIN [Suspect]
     Indication: DEPRESSION
     Dosage: 300MG PER DAY
     Route: 048

REACTIONS (8)
  - AGITATION [None]
  - ANGIONEUROTIC OEDEMA [None]
  - ANXIETY [None]
  - CHEST PAIN [None]
  - DRY MOUTH [None]
  - HYPOACUSIS [None]
  - NAUSEA [None]
  - RASH MACULO-PAPULAR [None]
